FAERS Safety Report 23287114 (Version 2)
Quarter: 2025Q2

REPORT INFORMATION
  Report Type: Report from Study
  Country: JP (occurrence: JP)
  Receive Date: 20231212
  Receipt Date: 20250606
  Transmission Date: 20250716
  Serious: Yes (Hospitalization, Other)
  Sender: RECORDATI
  Company Number: JP-RECORDATI RARE DISEASE INC.-2023008063

PATIENT

DRUGS (13)
  1. NEOPROFEN [Suspect]
     Active Substance: IBUPROFEN LYSINE
     Indication: Patent ductus arteriosus
     Route: 042
     Dates: start: 20201211, end: 20201211
  2. NEOPROFEN [Suspect]
     Active Substance: IBUPROFEN LYSINE
     Route: 042
     Dates: start: 20201227, end: 20201227
  3. NEOPROFEN [Suspect]
     Active Substance: IBUPROFEN LYSINE
     Route: 042
     Dates: start: 20210101, end: 20210101
  4. AMPICILLIN SODIUM\SULBACTAM SODIUM [Concomitant]
     Active Substance: AMPICILLIN SODIUM\SULBACTAM SODIUM
     Indication: Infection prophylaxis
     Route: 042
     Dates: start: 20201210, end: 20201212
  5. AZACTAM [Concomitant]
     Active Substance: AZTREONAM
     Indication: Infection prophylaxis
     Route: 042
     Dates: start: 20201210, end: 20201212
  6. POLYGLOBIN [Concomitant]
     Active Substance: HUMAN IMMUNOGLOBULIN G
     Indication: Infection prophylaxis
     Dates: start: 20201210, end: 20201213
  7. CAFFEINE [Concomitant]
     Active Substance: CAFFEINE
     Indication: Prophylaxis
     Route: 042
     Dates: start: 20201213, end: 20201224
  8. CAFFEINE [Concomitant]
     Active Substance: CAFFEINE
     Route: 048
     Dates: start: 20201225, end: 20210311
  9. DOPAMINE HYDROCHLORIDE [Concomitant]
     Active Substance: DOPAMINE HYDROCHLORIDE
     Indication: Vasodilatation
     Dates: start: 20201214, end: 20210106
  10. SOLU-CORTEF [Concomitant]
     Active Substance: HYDROCORTISONE SODIUM SUCCINATE
     Indication: Circulatory failure neonatal
     Route: 042
     Dates: start: 20201231, end: 20210121
  11. EPOETIN ALFA [Concomitant]
     Active Substance: ERYTHROPOIETIN
     Indication: Anaemia neonatal
     Route: 058
     Dates: start: 20201221, end: 20210301
  12. ALFAROL [Concomitant]
     Active Substance: ALFACALCIDOL
     Indication: Prophylaxis
     Route: 048
     Dates: start: 20201225, end: 20210318
  13. PANVITAN [ASCORBIC ACID;ERGOCALCIFEROL;NICOTINAMIDE;PANTHENOL;PYRIDOXI [Concomitant]
     Indication: Vitamin supplementation
     Route: 048
     Dates: start: 20201225, end: 20210318

REACTIONS (9)
  - Bronchopulmonary dysplasia [Recovered/Resolved]
  - Circulatory failure neonatal [Recovered/Resolved]
  - Retinopathy of prematurity [Recovered/Resolved]
  - Vasodilatation [Recovered/Resolved]
  - Pulmonary oedema [Recovered/Resolved]
  - Pneumothorax [Recovered/Resolved]
  - Anaemia [Recovered/Resolved]
  - Erythema [Recovered/Resolved]
  - Urine output decreased [Recovered/Resolved]

NARRATIVE: CASE EVENT DATE: 20201212
